FAERS Safety Report 8963272 (Version 1)
Quarter: 2012Q4

REPORT INFORMATION
  Report Type: 
  Country: GB (occurrence: GB)
  Receive Date: 20121214
  Receipt Date: 20121214
  Transmission Date: 20130627
  Serious: Yes (Hospitalization)
  Sender: FDA-Public Use
  Company Number: GB-UCBSA-072580

PATIENT
  Age: 76 Year
  Sex: Male

DRUGS (3)
  1. LEVETIRACETAM [Suspect]
     Indication: POST-TRAUMATIC EPILEPSY
  2. SODIUM VALPROATE [Concomitant]
     Indication: POST-TRAUMATIC EPILEPSY
     Dosage: UNKNOWN
  3. CLOBAZAM [Concomitant]
     Indication: POST-TRAUMATIC EPILEPSY
     Dosage: UNKNOWN

REACTIONS (10)
  - Confusional state [Unknown]
  - Disorientation [Unknown]
  - Aphasia [Unknown]
  - Insomnia [Unknown]
  - Restlessness [Unknown]
  - Agitation [Recovered/Resolved]
  - Aggression [Recovered/Resolved]
  - Circadian rhythm sleep disorder [Recovered/Resolved]
  - Hyponatraemia [Unknown]
  - Drug dose omission [Unknown]
